FAERS Safety Report 8004374-4 (Version None)
Quarter: 2011Q4

REPORT INFORMATION
  Report Type: 
  Country: None (occurrence: None)
  Receive Date: 20111223
  Receipt Date: 20111215
  Transmission Date: 20120403
  Serious: No
  Sender: FDA-Public Use
  Company Number: US-BIOGENIDEC-2011BI047393

PATIENT
  Age: 57 Year
  Sex: Female

DRUGS (2)
  1. AVONEX [Suspect]
     Indication: MULTIPLE SCLEROSIS
     Route: 030
     Dates: start: 20110908
  2. SOLU-MEDROL [Concomitant]
     Indication: MULTIPLE SCLEROSIS
     Dates: start: 20110801, end: 20111101

REACTIONS (6)
  - ARTHRALGIA [None]
  - NAUSEA [None]
  - RADIUS FRACTURE [None]
  - FALL [None]
  - JOINT SWELLING [None]
  - UPPER LIMB FRACTURE [None]
